FAERS Safety Report 5680605-0 (Version None)
Quarter: 2008Q1

REPORT INFORMATION
  Report Type: 
  Country: None (occurrence: None)
  Receive Date: 20080326
  Receipt Date: 20080319
  Transmission Date: 20080703
  Serious: Yes (Hospitalization)
  Sender: FDA-Public Use
  Company Number: US-ABBOTT-08P-163-0443188-00

PATIENT
  Weight: 61.29 kg

DRUGS (2)
  1. HUMIRA [Suspect]
     Indication: RHEUMATOID ARTHRITIS
     Route: 058
     Dates: start: 20060101, end: 20060701
  2. HUMIRA [Suspect]
     Dates: end: 20080201

REACTIONS (4)
  - BREAST MASS [None]
  - FALL [None]
  - INJECTION SITE PAIN [None]
  - JOINT INJURY [None]
